FAERS Safety Report 5936422-7 (Version None)
Quarter: 2008Q4

REPORT INFORMATION
  Report Type: 
  Country: None (occurrence: None)
  Receive Date: 20081021
  Receipt Date: 20080327
  Transmission Date: 20090506
  Serious: Yes (Other)
  Sender: FDA-Public Use
  Company Number: HQWYE174519JUL06

PATIENT
  Age: 49 Year
  Sex: Female

DRUGS (3)
  1. PREMARIN [Suspect]
     Indication: MENOPAUSE
     Dosage: ORAL
     Route: 048
  2. PREMPRO [Suspect]
     Indication: MENOPAUSE
     Dosage: ORAL
     Route: 048
  3. PROVERA [Suspect]
     Indication: MENOPAUSE

REACTIONS (1)
  - BREAST CANCER [None]
